FAERS Safety Report 10551819 (Version 2)
Quarter: 2014Q4

REPORT INFORMATION
  Report Type: Spontaneous
  Country: US (occurrence: None)
  Receive Date: 20141027
  Receipt Date: 20141128
  Transmission Date: 20150529
  Serious: Yes (Life-Threatening, Other)
  Sender: FDA-Public Use
  Company Number: ADR-2014-01979

PATIENT
  Age: 56 Year
  Sex: Female
  Weight: 77 kg

DRUGS (7)
  1. IBUPROFEN. [Suspect]
     Active Substance: IBUPROFEN
     Dosage: 200 MG BY MOUTH; 4 TABLETS 4 TIMES/DAY AS NEEDED
     Route: 048
  2. VALACYCLOVIR [Suspect]
     Active Substance: VALACYCLOVIR HYDROCHLORIDE
     Dosage: 1 GRAM TABLET ORAL TWICE/DAY
     Route: 048
  3. BUPIVACAINE [Suspect]
     Active Substance: BUPIVACAINE
     Dosage: 8.003MG/DAY
  4. NEXIUM [Suspect]
     Active Substance: ESOMEPRAZOLE MAGNESIUM
     Dosage: ORAL 40MG DAILY
     Route: 048
  5. BACLOFEN INTRATHECAL [Suspect]
     Active Substance: BACLOFEN
     Dosage: 400.1MCG/DAY
     Dates: start: 201402
  6. DILAUDID [Suspect]
     Active Substance: HYDROMORPHONE HYDROCHLORIDE
  7. LORAZEPAM. [Suspect]
     Active Substance: LORAZEPAM
     Dosage: 0.5 MG 3 TIMES/DAY AS NEEDED FOR ANXIETY?

REACTIONS (14)
  - Procedural pain [None]
  - Apparent death [None]
  - Device difficult to use [None]
  - Muscle spasms [None]
  - Withdrawal syndrome [None]
  - Adhesion [None]
  - Peripheral coldness [None]
  - Vital functions abnormal [None]
  - Device breakage [None]
  - Asthenia [None]
  - Hypoaesthesia [None]
  - Crying [None]
  - Abasia [None]
  - Malaise [None]

NARRATIVE: CASE EVENT DATE: 20140201
